FAERS Safety Report 7156573-1 (Version None)
Quarter: 2010Q4

REPORT INFORMATION
  Report Type: 
  Country: None (occurrence: None)
  Receive Date: 20101214
  Receipt Date: 20091105
  Transmission Date: 20110411
  Serious: No
  Sender: FDA-Public Use
  Company Number: US-ASTRAZENECA-2009SE25250

PATIENT
  Age: 50 Year
  Sex: Female
  Weight: 99.8 kg

DRUGS (2)
  1. CRESTOR [Suspect]
     Indication: BLOOD CHOLESTEROL INCREASED
     Route: 048
     Dates: start: 20080601, end: 20090901
  2. SYNTHROID [Concomitant]

REACTIONS (3)
  - BLOOD IRON DECREASED [None]
  - FATIGUE [None]
  - WEIGHT INCREASED [None]
